FAERS Safety Report 5758135-7 (Version None)
Quarter: 2008Q2

REPORT INFORMATION
  Report Type: 
  Country: None (occurrence: None)
  Receive Date: 20080530
  Receipt Date: 20080514
  Transmission Date: 20081010
  Serious: Yes (Hospitalization)
  Sender: FDA-Public Use
  Company Number: 8032878

PATIENT
  Age: 69 Year
  Sex: Female

DRUGS (4)
  1. PREDNISONE TAB [Suspect]
     Dosage: 60 MG /D
     Dates: start: 19730101
  2. PREDNISONE TAB [Suspect]
     Dosage: 5 MG /D
     Dates: end: 19750401
  3. PREDNISONE TAB [Suspect]
     Dosage: 45 MG/D
     Dates: start: 19750101
  4. PREDNISONE TAB [Suspect]
     Dosage: 5 MG /D

REACTIONS (7)
  - BLOOD PRESSURE INCREASED [None]
  - HEADACHE [None]
  - PALPITATIONS [None]
  - PHAEOCHROMOCYTOMA [None]
  - RED BLOOD CELL SEDIMENTATION RATE INCREASED [None]
  - TEMPORAL ARTERITIS [None]
  - TREMOR [None]
